FAERS Safety Report 4345875-X (Version None)
Quarter: 2004Q2

REPORT INFORMATION
  Report Type: 
  Country: None (occurrence: None)
  Receive Date: 20040426
  Receipt Date: 20030205
  Transmission Date: 20050107
  Serious: No
  Sender: FDA-Public Use
  Company Number: US-BRISTOL-MYERS SQUIBB COMPANY-12177028

PATIENT
  Age: 61 Year
  Sex: Male
  Weight: 86 kg

DRUGS (5)
  1. CYCLOPHOSPHAMIDE [Suspect]
     Indication: CRYPTOGENIC ORGANIZING PNEUMONIA
     Dosage: DRUG WAS STOPPED ON 11 FEB 2003
     Route: 048
     Dates: start: 20020829
  2. PREDNISONE [Concomitant]
  3. GUAIFENESIN LA [Concomitant]
  4. ZANTAC [Concomitant]
  5. ATIVAN [Concomitant]

REACTIONS (3)
  - PRURITUS GENERALISED [None]
  - RASH SCALY [None]
  - SKIN BURNING SENSATION [None]
